FAERS Safety Report 9315326 (Version 1)
Quarter: 2013Q2

REPORT INFORMATION
  Report Type: Spontaneous
  Country: None (occurrence: CN)
  Receive Date: 20130529
  Receipt Date: 20130529
  Transmission Date: 20140414
  Serious: Yes (Other)
  Sender: FDA-Public Use
  Company Number: CN-ASTRAZENECA-2013SE37475

PATIENT
  Age: 25568 Day
  Sex: Male

DRUGS (2)
  1. ROSUVASTATIN CALCIUM [Suspect]
     Indication: HYPERLIPIDAEMIA
     Route: 048
     Dates: start: 20120401, end: 20120412
  2. FENOFIBRATE [Concomitant]
     Indication: HYPERLIPIDAEMIA
     Dates: start: 20120401

REACTIONS (2)
  - Renal impairment [Recovered/Resolved]
  - Hepatic function abnormal [Recovered/Resolved]
